FAERS Safety Report 13911173 (Version 2)
Quarter: 2019Q4

REPORT INFORMATION
  Report Type: Spontaneous
  Country: DE (occurrence: DE)
  Receive Date: 20170828
  Receipt Date: 20191216
  Transmission Date: 20200122
  Serious: Yes (Other)
  Sender: FDA-Public Use
  Company Number: DE-UCBSA-2017033090

PATIENT
  Age: 14 Year
  Sex: Female
  Weight: 38 kg

DRUGS (4)
  1. LEVETIRACETAM. [Suspect]
     Active Substance: LEVETIRACETAM
     Indication: EPILEPSY
     Dosage: 1000 MG, 2X/DAY (BID)
     Route: 048
     Dates: start: 20160109, end: 20160210
  2. BELLA HEXAL [Concomitant]
     Active Substance: CYPROTERONE ACETATE\ETHINYL ESTRADIOL
     Indication: CONTRACEPTION
     Dosage: 2 MG, ONCE DAILY (QD)
     Route: 048
     Dates: end: 20160204
  3. LEVETIRACETAM. [Suspect]
     Active Substance: LEVETIRACETAM
     Dosage: 1250 MILLIGRAM, ONCE DAILY (QD)
     Route: 048
     Dates: start: 20160211, end: 20161003
  4. OSPOLOT [Suspect]
     Active Substance: SULTHIAME
     Indication: EPILEPSY
     Dosage: 150 MG, 2X/DAY (BID)
     Route: 048
     Dates: start: 20160109, end: 20161003

REACTIONS (3)
  - Epilepsy [Unknown]
  - Maternal exposure before pregnancy [Unknown]
  - Off label use [Unknown]

NARRATIVE: CASE EVENT DATE: 201601
